FAERS Safety Report 6203264-7 (Version None)
Quarter: 2009Q2

REPORT INFORMATION
  Report Type: 
  Country: None (occurrence: None)
  Receive Date: 20090527
  Receipt Date: 20090519
  Transmission Date: 20091009
  Serious: Yes (Other)
  Sender: FDA-Public Use
  Company Number: US-TEVA-186709USA

PATIENT
  Sex: Female

DRUGS (7)
  1. CLARAVIS CAPSULE, ISOTRETINOIN, 20MG, 30MG, 40MG [Suspect]
     Route: 048
     Dates: start: 20081216, end: 20090101
  2. CLARAVIS CAPSULE, ISOTRETINOIN, 20MG, 30MG, 40MG [Suspect]
     Route: 048
     Dates: start: 20081216, end: 20090101
  3. CLARAVIS CAPSULE, ISOTRETINOIN, 20MG, 30MG, 40MG [Suspect]
     Route: 048
     Dates: start: 20090201, end: 20090201
  4. CLARAVIS CAPSULE, ISOTRETINOIN, 20MG, 30MG, 40MG [Suspect]
     Route: 048
     Dates: start: 20090201, end: 20090201
  5. ISOTRETINOIN [Suspect]
     Route: 048
     Dates: start: 20080916
  6. ISOTRETINOIN [Suspect]
     Route: 048
     Dates: start: 20080916
  7. HORMONE PATCH [Concomitant]

REACTIONS (2)
  - ABORTION INDUCED [None]
  - UNINTENDED PREGNANCY [None]
